FAERS Safety Report 19021228 (Version 9)
Quarter: 2021Q4

REPORT INFORMATION
  Report Type: Report from Study
  Country: US (occurrence: US)
  Receive Date: 20210317
  Receipt Date: 20211123
  Transmission Date: 20220303
  Serious: Yes (Other)
  Sender: FDA-Public Use
  Company Number: US-NOVARTISPH-NVSC2021US060041

PATIENT
  Sex: Male

DRUGS (1)
  1. ENTRESTO [Suspect]
     Active Substance: SACUBITRIL\VALSARTAN
     Indication: Product used for unknown indication
     Dosage: UNK
     Route: 065

REACTIONS (9)
  - Cardiac failure [Unknown]
  - Pneumonia bacterial [Unknown]
  - Oxygen saturation decreased [Unknown]
  - Weight increased [Recovering/Resolving]
  - Peripheral swelling [Unknown]
  - Chest pain [Recovering/Resolving]
  - Throat clearing [Recovering/Resolving]
  - Weight decreased [Unknown]
  - Cough [Unknown]
